FAERS Safety Report 6737636-9 (Version None)
Quarter: 2010Q2

REPORT INFORMATION
  Report Type: 
  Country: None (occurrence: None)
  Receive Date: 20100521
  Receipt Date: 20100521
  Transmission Date: 20101027
  Serious: Yes (Death)
  Sender: FDA-Public Use
  Company Number: None

PATIENT
  Age: 77 Year
  Sex: Female
  Weight: 63.5036 kg

DRUGS (2)
  1. ADVAIR DISKUS 250/50 [Suspect]
     Dosage: 250/50MG 2 TIMES PER DAY
  2. LIPITOR [Concomitant]

REACTIONS (3)
  - CARDIAC ARREST [None]
  - RESPIRATORY DISORDER [None]
  - SUDDEN CARDIAC DEATH [None]
